FAERS Safety Report 5082227-1 (Version None)
Quarter: 2006Q3

REPORT INFORMATION
  Report Type: 
  Country: None (occurrence: None)
  Receive Date: 20060815
  Receipt Date: 20060815
  Transmission Date: 20061208
  Serious: Yes (Other)
  Sender: FDA-Public Use
  Company Number: None

PATIENT
  Age: 83 Year
  Sex: Male
  Weight: 73.9 kg

DRUGS (10)
  1. VANCOMYCIN [Suspect]
     Dosage: 1GM, ONE DOSE, INTRAVENOUS
     Route: 042
     Dates: start: 20060520, end: 20060520
  2. ASPIRIN [Concomitant]
  3. IPRATROPIUM (ATROVENT) [Concomitant]
  4. ALBUTEROL [Concomitant]
  5. FUROSEMIDE [Concomitant]
  6. NEPERIDINE (DEMEROL) [Concomitant]
  7. ZOCOR [Concomitant]
  8. LISINOPRIL [Concomitant]
  9. FUROSEMIDE [Concomitant]
  10. LEVOFLOXACIN 500MG/100ML D5W [Concomitant]

REACTIONS (2)
  - ANAPHYLACTIC REACTION [None]
  - CHILLS [None]
